FAERS Safety Report 21749225 (Version 1)
Quarter: 2022Q4

REPORT INFORMATION
  Report Type: Spontaneous
  Country: PL (occurrence: PL)
  Receive Date: 20221219
  Receipt Date: 20221219
  Transmission Date: 20230113
  Serious: Yes (Other)
  Sender: FDA-Public Use
  Company Number: None

PATIENT
  Age: 84 Year
  Sex: Male
  Weight: 63 kg

DRUGS (2)
  1. OPDIVO [Suspect]
     Active Substance: NIVOLUMAB
     Indication: Malignant melanoma
     Dosage: DOSAGE: 40MG, 2 UNITS
     Route: 042
     Dates: start: 20180426, end: 20180913
  2. OPDIVO [Suspect]
     Active Substance: NIVOLUMAB
     Dosage: DOSAGE: 100MG, 4 UNITS
     Route: 042
     Dates: start: 20180426, end: 20180913

REACTIONS (2)
  - Blood lactate dehydrogenase increased [Recovering/Resolving]
  - Liver function test increased [Recovering/Resolving]

NARRATIVE: CASE EVENT DATE: 20181001
